FAERS Safety Report 20802954 (Version 1)
Quarter: 2022Q2

REPORT INFORMATION
  Report Type: Spontaneous
  Country: DE (occurrence: DE)
  Receive Date: 20220509
  Receipt Date: 20220509
  Transmission Date: 20220721
  Serious: Yes (Hospitalization, Other)
  Sender: FDA-Public Use
  Company Number: DE-Stemline Therapeutics, Inc.-2022ST000042

PATIENT
  Age: 52 Year
  Sex: Male

DRUGS (3)
  1. TAGRAXOFUSP-ERZS [Suspect]
     Active Substance: TAGRAXOFUSP-ERZS
     Indication: Blastic plasmacytoid dendritic cell neoplasia
     Dosage: FIRST CYCLE
     Route: 042
     Dates: start: 202012
  2. TAGRAXOFUSP-ERZS [Suspect]
     Active Substance: TAGRAXOFUSP-ERZS
     Dosage: SECOND CYCLE
     Route: 042
     Dates: start: 202101
  3. TAGRAXOFUSP-ERZS [Suspect]
     Active Substance: TAGRAXOFUSP-ERZS
     Dosage: THIRD CYCLE
     Route: 042
     Dates: start: 202103

REACTIONS (2)
  - Neoplasm recurrence [Recovered/Resolved]
  - Hepatic enzyme increased [Recovered/Resolved]

NARRATIVE: CASE EVENT DATE: 20201201
